FAERS Safety Report 20408387 (Version 2)
Quarter: 2022Q2

REPORT INFORMATION
  Report Type: Spontaneous
  Country: CN (occurrence: None)
  Receive Date: 20220201
  Receipt Date: 20220429
  Transmission Date: 20220721
  Serious: Yes (Other)
  Sender: FDA-Public Use
  Company Number: CN-ROCHE-3010337

PATIENT
  Age: 67 Year
  Sex: Male

DRUGS (32)
  1. MABTHERA [Suspect]
     Active Substance: RITUXIMAB
     Indication: Diffuse large B-cell lymphoma
     Dosage: R2-CHOP REGIMEN
     Route: 065
     Dates: start: 20180512
  2. MABTHERA [Suspect]
     Active Substance: RITUXIMAB
     Dosage: R-DA-EPOCH REGIMEN
     Route: 065
     Dates: start: 20180606, end: 20181010
  3. MABTHERA [Suspect]
     Active Substance: RITUXIMAB
     Dosage: ON 15/DEC/2018 AND 13/JAN/2019
     Route: 065
  4. MABTHERA [Suspect]
     Active Substance: RITUXIMAB
     Dosage: R-GDP REGIMEN
     Route: 065
     Dates: start: 20200608, end: 20200717
  5. MABTHERA [Suspect]
     Active Substance: RITUXIMAB
     Dosage: ON DAY 0
     Route: 065
     Dates: start: 20210923
  6. GAZYVA [Suspect]
     Active Substance: OBINUTUZUMAB
     Indication: Diffuse large B-cell lymphoma
     Dosage: ON DAY 0, ON 26/OCT/2021, 03/DEC/2021 AND 07/JAN/2022
     Route: 065
  7. LENALIDOMIDE [Concomitant]
     Active Substance: LENALIDOMIDE
     Indication: Diffuse large B-cell lymphoma
     Dosage: R2-CHOP REGIMEN
     Dates: start: 20180512
  8. CYCLOPHOSPHAMIDE [Concomitant]
     Active Substance: CYCLOPHOSPHAMIDE
     Indication: Diffuse large B-cell lymphoma
     Dosage: R2-CHOP REGIMEN
     Dates: start: 20180512
  9. CYCLOPHOSPHAMIDE [Concomitant]
     Active Substance: CYCLOPHOSPHAMIDE
     Dosage: R-DA-EPOCH REGIMEN
     Dates: start: 20180606, end: 20181010
  10. CYCLOPHOSPHAMIDE [Concomitant]
     Active Substance: CYCLOPHOSPHAMIDE
     Dosage: ON DAY 4
     Dates: start: 20210923
  11. CYCLOPHOSPHAMIDE [Concomitant]
     Active Substance: CYCLOPHOSPHAMIDE
     Dosage: ON DAY 1, ON 26 OCT 2021, 03 DEC 2021 AND 07 JAN 2022
  12. DOXORUBICIN [Concomitant]
     Active Substance: DOXORUBICIN
     Indication: Diffuse large B-cell lymphoma
     Dosage: R2-CHOP REGIMEN
     Dates: start: 20180512
  13. DOXORUBICIN [Concomitant]
     Active Substance: DOXORUBICIN
     Dosage: R-DA-EPOCH REGIMEN
     Dates: start: 20180606, end: 20181010
  14. VINCRISTINE [Concomitant]
     Active Substance: VINCRISTINE
     Indication: Diffuse large B-cell lymphoma
     Dosage: R2-CHOP REGIMEN
     Dates: start: 20180512
  15. VINCRISTINE [Concomitant]
     Active Substance: VINCRISTINE
     Dosage: R-DA-EPOCH REGIMEN
     Dates: start: 20180606, end: 20181010
  16. PREDNISONE [Concomitant]
     Active Substance: PREDNISONE
     Indication: Diffuse large B-cell lymphoma
     Dosage: R2-CHOP REGIMEN
     Dates: start: 20180512
  17. PREDNISONE [Concomitant]
     Active Substance: PREDNISONE
     Dosage: R-DA-EPOCH REGIMEN
     Dates: start: 20180606, end: 20181010
  18. ETOPOSIDE [Concomitant]
     Active Substance: ETOPOSIDE
     Indication: Diffuse large B-cell lymphoma
     Dosage: R-DA-EPOCH REGIMEN
     Dates: start: 20180606, end: 20181010
  19. ETOPOSIDE [Concomitant]
     Active Substance: ETOPOSIDE
     Dosage: BEAM REGIMEN
     Dates: start: 20200905
  20. ETOPOSIDE [Concomitant]
     Active Substance: ETOPOSIDE
     Dosage: 700MG ON DAY 1, 100MG ON DAY 3-4
     Dates: start: 20210923
  21. ETOPOSIDE [Concomitant]
     Active Substance: ETOPOSIDE
     Dosage: ON DAY 1-3, ON 26 OCT 2021, 03 DEC 2021 AND 07 JAN 2022
  22. GEMCITABINE [Concomitant]
     Active Substance: GEMCITABINE
     Indication: Diffuse large B-cell lymphoma
     Dosage: R-GDP REGIMEN
     Dates: start: 20200608, end: 20200717
  23. CISPLATIN [Concomitant]
     Active Substance: CISPLATIN
     Indication: Diffuse large B-cell lymphoma
     Dosage: R-GDP REGIMEN
     Dates: start: 20200608, end: 20200717
  24. DEXAMETHASONE [Concomitant]
     Active Substance: DEXAMETHASONE
     Indication: Diffuse large B-cell lymphoma
     Dosage: R-GDP REGIMEN
     Dates: start: 20200608, end: 20200717
  25. DEXAMETHASONE [Concomitant]
     Active Substance: DEXAMETHASONE
     Dosage: ON DAY 1-4
     Dates: start: 20210923
  26. DEXAMETHASONE [Concomitant]
     Active Substance: DEXAMETHASONE
     Dosage: ON DAY 0-4, ON 26 OCT 2021, 03 DEC 2021 AND 07 JAN 2022
  27. CARMUSTINE [Concomitant]
     Active Substance: CARMUSTINE
     Indication: Diffuse large B-cell lymphoma
     Dosage: BEAM REGIMEN
     Dates: start: 20200905
  28. CYTARABINE [Concomitant]
     Active Substance: CYTARABINE
     Indication: Diffuse large B-cell lymphoma
     Dosage: BEAM REGIMEN
     Dates: start: 20200905
  29. MELPHALAN [Concomitant]
     Active Substance: MELPHALAN
     Indication: Diffuse large B-cell lymphoma
     Dosage: BEAM REGIMEN
     Dates: start: 20200905
  30. EPIRUBICIN [Concomitant]
     Active Substance: EPIRUBICIN
     Indication: Diffuse large B-cell lymphoma
     Dates: start: 20210923
  31. VINDESINE [Concomitant]
     Active Substance: VINDESINE
     Indication: Diffuse large B-cell lymphoma
     Dosage: 1MG ON DAY 1, 3MG ON DAY 3
     Dates: start: 20210923
  32. VINORELBINE [Concomitant]
     Active Substance: VINORELBINE TARTRATE
     Indication: Diffuse large B-cell lymphoma
     Dosage: ON DAY 1, ON 26 OCT 2021, 03 DEC 2021 AND 07 JAN 2022

REACTIONS (5)
  - Rash [Unknown]
  - CSF protein increased [Unknown]
  - Off label use [Unknown]
  - Infusion related reaction [Unknown]
  - Bone pain [Unknown]

NARRATIVE: CASE EVENT DATE: 20200316
